FAERS Safety Report 8558199-1 (Version None)
Quarter: 2012Q3

REPORT INFORMATION
  Report Type: 
  Country: None (occurrence: None)
  Receive Date: 20120801
  Receipt Date: 20120730
  Transmission Date: 20120928
  Serious: Yes (Other)
  Sender: FDA-Public Use
  Company Number: FR-TEVA-351340USA

PATIENT
  Sex: Female
  Weight: 62 kg

DRUGS (2)
  1. TREANDA [Suspect]
     Dosage: CYCLIC
     Dates: start: 20111117
  2. RITUXIMAB [Suspect]
     Dosage: CYCLIC
     Dates: start: 20111117

REACTIONS (1)
  - MYELOFIBROSIS [None]
